FAERS Safety Report 9275068 (Version 1)
Quarter: 2013Q2

REPORT INFORMATION
  Report Type: Spontaneous
  Country: US (occurrence: None)
  Receive Date: 20130430
  Receipt Date: 20130430
  Transmission Date: 20140414
  Serious: Yes (Life-Threatening, Hospitalization)
  Sender: FDA-Public Use
  Company Number: 2013AP004673

PATIENT
  Age: 68 Year
  Sex: Female

DRUGS (5)
  1. ALLOPURINOL [Suspect]
  2. MYCOPHENOLATE MOFETIL [Concomitant]
  3. NESIRITIDE [Concomitant]
  4. DOBUTAMINE [Concomitant]
  5. AZATHIOPRINE [Concomitant]

REACTIONS (4)
  - Stevens-Johnson syndrome [None]
  - Myocarditis [None]
  - Atrioventricular block complete [None]
  - Pulmonary oedema [None]
